FAERS Safety Report 9478859 (Version 2)
Quarter: 2013Q3

REPORT INFORMATION
  Report Type: Spontaneous
  Country: US (occurrence: None)
  Receive Date: 20130823
  Receipt Date: 20130905
  Transmission Date: 20140515
  Serious: Yes (Other)
  Sender: FDA-Public Use
  Company Number: PI-09758

PATIENT
  Age: 83 Year
  Sex: Male

DRUGS (1)
  1. CHLORAPREP [Suspect]
     Indication: THERAPEUTIC PROCEDURE
     Dosage: 26ML, ONCE, TOPICAL
     Route: 061
     Dates: start: 20130627

REACTIONS (3)
  - Burns first degree [None]
  - Burns second degree [None]
  - Accident [None]
